FAERS Safety Report 24098156 (Version 1)
Quarter: 2024Q3

REPORT INFORMATION
  Report Type: Spontaneous
  Country: US (occurrence: None)
  Receive Date: 20240716
  Receipt Date: 20240716
  Transmission Date: 20241017
  Serious: Yes (Life-Threatening, Disabling)
  Sender: Public
  Company Number: None

PATIENT
  Age: 44 Year
  Sex: Male
  Weight: 157.5 kg

DRUGS (15)
  1. DIETARY SUPPLEMENT [Suspect]
     Active Substance: DIETARY SUPPLEMENT
     Indication: Arthralgia
     Dates: start: 20240125, end: 20240716
  2. DIETARY SUPPLEMENT [Suspect]
     Active Substance: DIETARY SUPPLEMENT
     Indication: Carpal tunnel syndrome
  3. VALSARTAN [Suspect]
     Active Substance: VALSARTAN
  4. NOVOLOG [Concomitant]
     Active Substance: INSULIN ASPART
  5. XANAX [Concomitant]
     Active Substance: ALPRAZOLAM
  6. TESTOSTERONE CYPIONATE [Concomitant]
     Active Substance: TESTOSTERONE CYPIONATE
  7. PIOGLITAZONE [Concomitant]
     Active Substance: PIOGLITAZONE
  8. ROSUVASTATIN CALCIUM [Concomitant]
     Active Substance: ROSUVASTATIN CALCIUM
  9. TRIAMTERENE [Concomitant]
     Active Substance: TRIAMTERENE
  10. LEVOTHYROXINE SODIUM [Concomitant]
     Active Substance: LEVOTHYROXINE SODIUM
  11. ESCITALOPRAM OXALATE [Concomitant]
     Active Substance: ESCITALOPRAM OXALATE
  12. ESOMEPRAZOLE MAGNESIUM [Concomitant]
     Active Substance: ESOMEPRAZOLE MAGNESIUM
  13. GABAPENTIN [Concomitant]
     Active Substance: GABAPENTIN
  14. Dexcom g6 [Concomitant]
  15. ADDERALL [Concomitant]
     Active Substance: AMPHETAMINE ASPARTATE\AMPHETAMINE SULFATE\DEXTROAMPHETAMINE SACCHARATE\DEXTROAMPHETAMINE SULFATE

REACTIONS (3)
  - Acute kidney injury [None]
  - Hyponatraemia [None]
  - Hyperkalaemia [None]

NARRATIVE: CASE EVENT DATE: 20240503
